FAERS Safety Report 9046550 (Version 1)
Quarter: 2013Q1

REPORT INFORMATION
  Report Type: Spontaneous
  Country: US (occurrence: None)
  Receive Date: 20130128
  Receipt Date: 20130128
  Transmission Date: 20140127
  Serious: Yes (Hospitalization)
  Sender: FDA-Public Use
  Company Number: None

PATIENT
  Age: 18 Year
  Sex: Female
  Weight: 68.04 kg

DRUGS (1)
  1. SOLODYN [Suspect]
     Indication: ACNE CYSTIC
     Dosage: 1 PILL  ONCE A DAY
     Dates: start: 20120909, end: 20130105

REACTIONS (4)
  - Diplopia [None]
  - Papilloedema [None]
  - Skin exfoliation [None]
  - Skin disorder [None]
